FAERS Safety Report 5309120-0 (Version None)
Quarter: 2007Q2

REPORT INFORMATION
  Report Type: 
  Country: None (occurrence: None)
  Receive Date: 20070420
  Receipt Date: 20070412
  Transmission Date: 20071010
  Serious: Yes (Life-Threatening, Hospitalization, Other)
  Sender: FDA-Public Use
  Company Number: 2007SP006810

PATIENT
  Age: 48 Year
  Sex: Male
  Weight: 110.0426 kg

DRUGS (6)
  1. EPTIFIBATIDE (S-P) [Suspect]
     Indication: THROMBOSIS
     Dosage: 51.36 MG; ONCE; INBO
     Route: 040
     Dates: start: 20070312, end: 20070312
  2. BLINDED EPTIFIBATIDE (S-P) [Suspect]
     Indication: DRUG USE FOR UNKNOWN INDICATION
     Dosage: SEE IMAGE
     Dates: start: 20070312, end: 20070312
  3. BLINDED EPTIFIBATIDE (S-P) [Suspect]
     Indication: DRUG USE FOR UNKNOWN INDICATION
     Dosage: SEE IMAGE
     Dates: start: 20070312, end: 20070312
  4. CLOPIDOGREL [Suspect]
     Indication: DRUG USE FOR UNKNOWN INDICATION
     Dosage: 4 DF; ONCE; PO
     Route: 048
     Dates: start: 20070312, end: 20070312
  5. CLOPIDOGREL [Suspect]
     Indication: DRUG USE FOR UNKNOWN INDICATION
     Dosage: 4 DF; ONCE; PO
     Route: 048
     Dates: start: 20070312, end: 20070312
  6. HEPARIN [Concomitant]

REACTIONS (3)
  - HYPOTENSION [None]
  - PERICARDIAL EFFUSION [None]
  - RIGHT VENTRICULAR FAILURE [None]
